FAERS Safety Report 8014512-5 (Version None)
Quarter: 2011Q4

REPORT INFORMATION
  Report Type: 
  Country: None (occurrence: None)
  Receive Date: 20111223
  Receipt Date: 20111207
  Transmission Date: 20120403
  Serious: Yes (Other)
  Sender: FDA-Public Use
  Company Number: 2011AP000486

PATIENT
  Age: 76 Year
  Sex: Female

DRUGS (5)
  1. LOSARTAN POTASSIUM [Suspect]
     Indication: HYPERTENSION
     Dosage: TAB; PO
     Route: 048
     Dates: start: 20100812
  2. TRIMETHOPRIM [Suspect]
     Indication: LOWER RESPIRATORY TRACT INFECTION
     Dosage: 200 MG; BID
     Route: 048
     Dates: start: 20110922, end: 20110929
  3. DOXYCYCLINE [Suspect]
     Indication: LOWER RESPIRATORY TRACT INFECTION
     Dosage: 100 MG; QD
     Route: 048
     Dates: start: 20110822, end: 20110829
  4. CLARITHROMYCIN [Suspect]
     Indication: LOWER RESPIRATORY TRACT INFECTION
     Dosage: 500 MG; BID
     Route: 048
     Dates: start: 20110922, end: 20110929
  5. AMLODIPINE [Concomitant]

REACTIONS (1)
  - PEMPHIGOID [None]
